FAERS Safety Report 7328074-9 (Version None)
Quarter: 2011Q1

REPORT INFORMATION
  Report Type: 
  Country: None (occurrence: None)
  Receive Date: 20110303
  Receipt Date: 20110222
  Transmission Date: 20110831
  Serious: Yes (Hospitalization, Other)
  Sender: FDA-Public Use
  Company Number: CA-JNJFOC-20100606639

PATIENT
  Sex: Female
  Weight: 45 kg

DRUGS (8)
  1. REMICADE [Suspect]
     Indication: CROHN'S DISEASE
     Route: 042
     Dates: start: 20100603
  2. ACETAMINOPHEN [Concomitant]
     Indication: PREMEDICATION
  3. FENTANYL [Suspect]
     Indication: PAIN
  4. PREDNISONE [Concomitant]
     Dosage: TAPERING DOSE; DECREASED BY 5 MG WEEKLY
     Route: 048
  5. SOLU-CORTEF [Concomitant]
  6. REMICADE [Suspect]
     Route: 042
     Dates: start: 20100603
  7. MULTIVIT [Concomitant]
  8. BENADRYL [Concomitant]
     Indication: PREMEDICATION

REACTIONS (6)
  - NAUSEA [None]
  - JOINT SWELLING [None]
  - OEDEMA PERIPHERAL [None]
  - NEPHROLITHIASIS [None]
  - VOMITING [None]
  - WHITE BLOOD CELL COUNT INCREASED [None]
